FAERS Safety Report 4570494-X (Version None)
Quarter: 2005Q1

REPORT INFORMATION
  Report Type: 
  Country: None (occurrence: None)
  Receive Date: 20050203
  Receipt Date: 20050203
  Transmission Date: 20050727
  Serious: Yes (Life-Threatening)
  Sender: FDA-Public Use
  Company Number: None

PATIENT
  Sex: Female
  Weight: 82.5547 kg

DRUGS (8)
  1. CRESTOR [Suspect]
     Indication: HYPERLIPIDAEMIA
     Dosage: 1    QDAY   ORAL
     Route: 048
     Dates: start: 20040201, end: 20040609
  2. LOPID [Suspect]
     Indication: HYPERTRIGLYCERIDAEMIA
     Dosage: 1    BID   ORAL
     Route: 048
     Dates: start: 20040501, end: 20040609
  3. AVANDIA [Concomitant]
  4. ZESTRIL [Concomitant]
  5. COREG [Concomitant]
  6. GLUCOTROL XL [Concomitant]
  7. LASIX [Concomitant]
  8. POTASSIUM CHLORIDE [Concomitant]

REACTIONS (5)
  - ANOREXIA [None]
  - DRUG INTERACTION [None]
  - FATIGUE [None]
  - RENAL FAILURE [None]
  - RHABDOMYOLYSIS [None]
